FAERS Safety Report 9578995 (Version 1)
Quarter: 2013Q4

REPORT INFORMATION
  Report Type: Spontaneous
  Country: US (occurrence: US)
  Receive Date: 20131001
  Receipt Date: 20131001
  Transmission Date: 20140711
  Serious: No
  Sender: FDA-Public Use
  Company Number: US-AMGEN-USASP2013016278

PATIENT
  Age: 41 Year
  Sex: Female
  Weight: 79.37 kg

DRUGS (4)
  1. ENBREL [Suspect]
     Indication: RHEUMATOID ARTHRITIS
     Dosage: 50 MG, QWK
     Route: 058
  2. NAPROSYN                           /00256201/ [Concomitant]
     Dosage: 500 MG, UNK
  3. FLONASE [Concomitant]
     Dosage: 0.05 %, UNK
  4. ADVIL                              /00044201/ [Concomitant]
     Dosage: 200 MG, UNK

REACTIONS (1)
  - Drug ineffective [Unknown]
